FAERS Safety Report 17337338 (Version 3)
Quarter: 2020Q2

REPORT INFORMATION
  Report Type: Spontaneous
  Country: US (occurrence: US)
  Receive Date: 20200129
  Receipt Date: 20200404
  Transmission Date: 20200713
  Serious: Yes (Other)
  Sender: FDA-Public Use
  Company Number: NVSC2020US020206

PATIENT

DRUGS (1)
  1. BEOVU [Suspect]
     Active Substance: BROLUCIZUMAB-DBLL
     Indication: PRODUCT USED FOR UNKNOWN INDICATION
     Dosage: UNK (3 LOADING DOSES)
     Route: 047

REACTIONS (6)
  - Vitritis [Recovered/Resolved]
  - Visual acuity reduced [Unknown]
  - Anterior chamber cell [Unknown]
  - Iridocyclitis [Recovered/Resolved]
  - Keratic precipitates [Unknown]
  - Eye inflammation [Recovered/Resolved]
